FAERS Safety Report 13374030 (Version 1)
Quarter: 2017Q1

REPORT INFORMATION
  Report Type: Spontaneous
  Country: GB (occurrence: GB)
  Receive Date: 20170327
  Receipt Date: 20170327
  Transmission Date: 20170429
  Serious: Yes (Hospitalization, Other)
  Sender: FDA-Public Use
  Company Number: GB-JNJFOC-20170325442

PATIENT
  Age: 67 Year
  Sex: Female
  Weight: 99 kg

DRUGS (5)
  1. ACICLOVIR [Concomitant]
     Active Substance: ACYCLOVIR
     Route: 065
  2. IMBRUVICA [Suspect]
     Active Substance: IBRUTINIB
     Indication: B-CELL SMALL LYMPHOCYTIC LYMPHOMA
     Route: 048
     Dates: start: 20160909
  3. XARELTO [Concomitant]
     Active Substance: RIVAROXABAN
     Route: 065
  4. FUROSEMIDE. [Concomitant]
     Active Substance: FUROSEMIDE
     Route: 065
  5. NORTRIPTYLIN [Concomitant]
     Active Substance: NORTRIPTYLINE
     Route: 065

REACTIONS (1)
  - Angle closure glaucoma [Recovered/Resolved with Sequelae]

NARRATIVE: CASE EVENT DATE: 20170201
